FAERS Safety Report 5019720-3 (Version None)
Quarter: 2006Q2

REPORT INFORMATION
  Report Type: 
  Country: None (occurrence: None)
  Receive Date: 20060607
  Receipt Date: 20060526
  Transmission Date: 20061013
  Serious: Yes (Hospitalization)
  Sender: FDA-Public Use
  Company Number: PHNU2006DE02101

PATIENT
  Sex: Female

DRUGS (12)
  1. LOMIR SRO [Suspect]
     Route: 048
     Dates: end: 20050101
  2. LOMIR SRO [Suspect]
     Route: 048
     Dates: start: 20060518
  3. LISINOPRIL [Suspect]
     Route: 065
  4. ACETYLSALICYLIC ACID SRT [Suspect]
     Route: 065
  5. HYDROCHLOROTHIAZIDE [Suspect]
     Route: 065
  6. TORSEMIDE [Suspect]
     Route: 065
  7. MOXONIDINE [Suspect]
     Route: 065
  8. BISOPROLOL [Suspect]
     Route: 065
  9. CALCIUM GLUCONATE [Suspect]
     Dosage: UNK, UNK
     Route: 065
     Dates: end: 20060517
  10. OPIPRAMOL [Suspect]
     Route: 065
  11. STRONTIUM RANELATE [Suspect]
     Route: 065
  12. LACTULOSE [Suspect]
     Route: 065

REACTIONS (3)
  - CEREBROVASCULAR ACCIDENT [None]
  - DRUG INTERACTION [None]
  - FLUSHING [None]
